FAERS Safety Report 14872632 (Version 1)
Quarter: 2018Q2

REPORT INFORMATION
  Report Type: Spontaneous
  Country: US (occurrence: US)
  Receive Date: 20180510
  Receipt Date: 20180510
  Transmission Date: 20180711
  Serious: No
  Sender: FDA-Public Use
  Company Number: US-009507513-1804USA011820

PATIENT
  Age: 37 Year
  Sex: Female

DRUGS (5)
  1. TENOFOVIR DISOPROXIL FUMARATE. [Suspect]
     Active Substance: TENOFOVIR DISOPROXIL FUMARATE
     Dosage: UNK; STARTED AT WEEK 0 OF GESTATTIONAL AGE; TOTAL DAILY DOSE: 300(UNITS NOT SPECIFIED)
     Route: 048
  2. DARUNAVIR [Suspect]
     Active Substance: DARUNAVIR
     Dosage: UNK; STARTED AT WEEK 0 OF GESTATTIONAL AGE; TOTAL DAILY DOSE: 1200 (UNITS NOT SPECIFIED)
     Route: 048
  3. RITONAVIR. [Suspect]
     Active Substance: RITONAVIR
     Dosage: UNK; STARTED AT WEEK 0 OF GESTATTIONAL AGE; TOTAL DAILY DOSE: 200 (UNITS NOT SPECIFIED)
     Route: 048
  4. ZIDOVUDINE. [Suspect]
     Active Substance: ZIDOVUDINE
     Dosage: UNK; STARTED AT WEEK 29 OF GESTATTIONAL AGE; TOTAL DAILY DOSE: 600 (UNITS NOT SPECIFIED)
     Route: 048
  5. ISENTRESS [Suspect]
     Active Substance: RALTEGRAVIR POTASSIUM
     Dosage: UNK; STARTED AT WEEK 0 OF GESTATTIONAL AGE; TOTAL DAILY DOSE: 800 (UNITS NOT SPECIFIED)
     Route: 048

REACTIONS (2)
  - Maternal exposure during pregnancy [Recovered/Resolved]
  - No adverse event [Unknown]
